FAERS Safety Report 23203869 (Version 1)
Quarter: 2023Q4

REPORT INFORMATION
  Report Type: Spontaneous
  Country: US (occurrence: US)
  Receive Date: 20231120
  Receipt Date: 20231120
  Transmission Date: 20240110
  Serious: Yes (Other)
  Sender: FDA-Public Use
  Company Number: US-TAIHOP-2023-009492

PATIENT
  Sex: Female

DRUGS (1)
  1. LONSURF [Suspect]
     Active Substance: TIPIRACIL HYDROCHLORIDE\TRIFLURIDINE
     Indication: Colorectal cancer
     Dosage: CURRENT CYCLE, DOSAGE AND FREQUENCY UNKNOWN.
     Route: 048

REACTIONS (3)
  - White blood cell disorder [Unknown]
  - Disease progression [Unknown]
  - Malaise [Unknown]
